FAERS Safety Report 9437233 (Version 1)
Quarter: 2013Q3

REPORT INFORMATION
  Report Type: Report from Study
  Country: ES (occurrence: ES)
  Receive Date: 20130802
  Receipt Date: 20130802
  Transmission Date: 20140515
  Serious: Yes (Life-Threatening)
  Sender: FDA-Public Use
  Company Number: PHHO2013ES004407

PATIENT
  Age: 3 Year
  Sex: Male

DRUGS (4)
  1. EVEROLIMUS [Suspect]
     Indication: ASTROCYTOMA, LOW GRADE
     Dosage: 2.5 MG, EVERY TWO DAYS
     Route: 048
     Dates: start: 20120213
  2. EVEROLIMUS [Suspect]
     Dosage: 2.5 MG, QD
     Route: 048
     Dates: start: 20121221, end: 20130113
  3. EVEROLIMUS [Suspect]
     Dosage: 2.5 MG, QD
     Route: 048
     Dates: start: 20130118, end: 20130127
  4. EVEROLIMUS [Suspect]
     Dosage: 2.5 MG, QD
     Route: 048
     Dates: start: 20130228, end: 20130325

REACTIONS (4)
  - Septic shock [Recovering/Resolving]
  - Pneumonia [Recovering/Resolving]
  - Pyrexia [Recovering/Resolving]
  - Sepsis [Recovering/Resolving]
